FAERS Safety Report 5808169-9 (Version None)
Quarter: 2008Q3

REPORT INFORMATION
  Report Type: 
  Country: None (occurrence: None)
  Receive Date: 20080708
  Receipt Date: 20080624
  Transmission Date: 20090109
  Serious: No
  Sender: FDA-Public Use
  Company Number: 000882

PATIENT
  Age: 72 Year
  Sex: Male

DRUGS (2)
  1. PLETAL [Suspect]
     Indication: INTERMITTENT CLAUDICATION
     Dosage: 100 MG, BID,  ORAL
     Route: 048
     Dates: start: 20070406
  2. FLUVASTATIN SODIUM (FLUVASTATIN SODIUM) [Concomitant]

REACTIONS (2)
  - CONDITION AGGRAVATED [None]
  - PERIPHERAL ARTERIAL OCCLUSIVE DISEASE [None]
